FAERS Safety Report 4905489-7 (Version None)
Quarter: 2006Q1

REPORT INFORMATION
  Report Type: 
  Country: None (occurrence: None)
  Receive Date: 20060208
  Receipt Date: 20060131
  Transmission Date: 20060701
  Serious: Yes (Hospitalization)
  Sender: FDA-Public Use
  Company Number: 2006AP00570

PATIENT
  Age: 22 Year
  Sex: Female

DRUGS (3)
  1. OMEPRAL [Suspect]
     Indication: DUODENAL ULCER
     Route: 048
     Dates: start: 20060114, end: 20060128
  2. GASTROM [Concomitant]
     Indication: DUODENAL ULCER
     Route: 048
     Dates: start: 20060114, end: 20060128
  3. FERROMIA [Concomitant]
     Indication: IRON DEFICIENCY ANAEMIA
     Route: 048
     Dates: start: 20060114, end: 20060128

REACTIONS (1)
  - ATRIOVENTRICULAR BLOCK COMPLETE [None]
